FAERS Safety Report 14618377 (Version 3)
Quarter: 2018Q3

REPORT INFORMATION
  Report Type: Spontaneous
  Country: US (occurrence: US)
  Receive Date: 20180309
  Receipt Date: 20180726
  Transmission Date: 20181010
  Serious: Yes (Hospitalization, Other)
  Sender: FDA-Public Use
  Company Number: US-GLAXOSMITHKLINE-US2018039287

PATIENT
  Age: 46 Year
  Sex: Female

DRUGS (13)
  1. CALCIUM [Concomitant]
     Active Substance: CALCIUM
  2. BENLYSTA [Suspect]
     Active Substance: BELIMUMAB
     Indication: SYSTEMIC LUPUS ERYTHEMATOSUS
     Dosage: UNK UNK, CYC
     Route: 041
     Dates: start: 201703
  3. LYSINE [Concomitant]
     Active Substance: LYSINE
  4. FOLIC ACID. [Concomitant]
     Active Substance: FOLIC ACID
  5. CIALIS [Concomitant]
     Active Substance: TADALAFIL
  6. NIFEDIPINE. [Concomitant]
     Active Substance: NIFEDIPINE
  7. VALTREX [Concomitant]
     Active Substance: VALACYCLOVIR HYDROCHLORIDE
  8. BIOTIN [Concomitant]
     Active Substance: BIOTIN
  9. NEXIUM [Concomitant]
     Active Substance: ESOMEPRAZOLE MAGNESIUM
  10. PLAQUENIL [Concomitant]
     Active Substance: HYDROXYCHLOROQUINE SULFATE
  11. FISH OIL [Concomitant]
     Active Substance: FISH OIL
  12. PREDNISONE. [Concomitant]
     Active Substance: PREDNISONE
  13. VITAMIN C [Concomitant]
     Active Substance: ASCORBIC ACID

REACTIONS (2)
  - Colectomy [Recovered/Resolved]
  - Colon operation [Unknown]

NARRATIVE: CASE EVENT DATE: 20171129
